FAERS Safety Report 6489898-3 (Version None)
Quarter: 2009Q4

REPORT INFORMATION
  Report Type: 
  Country: None (occurrence: None)
  Receive Date: 20091211
  Receipt Date: 20091204
  Transmission Date: 20100525
  Serious: Yes (Hospitalization)
  Sender: FDA-Public Use
  Company Number: IT-JNJFOC-20091201883

PATIENT
  Sex: Male

DRUGS (4)
  1. LEVOFLOXACIN [Suspect]
     Indication: BRONCHITIS
     Route: 048
     Dates: start: 20091118, end: 20091121
  2. CLARITHROMYCIN [Suspect]
     Indication: BRONCHITIS
     Route: 048
     Dates: start: 20091112, end: 20091117
  3. PARACETAMOL [Concomitant]
     Route: 065
     Dates: start: 20091118, end: 20091121
  4. FENOFIBRATE [Concomitant]
     Route: 065

REACTIONS (1)
  - PURPURA [None]
